FAERS Safety Report 17913625 (Version 1)
Quarter: 2020Q2

REPORT INFORMATION
  Report Type: Spontaneous
  Country: US (occurrence: US)
  Receive Date: 20200618
  Receipt Date: 20200618
  Transmission Date: 20200714
  Serious: No
  Sender: FDA-Public Use
  Company Number: US-ASTRAZENECA-2020SE76515

PATIENT
  Age: 23381 Day
  Weight: 59 kg

DRUGS (14)
  1. CLARITIN [Concomitant]
     Active Substance: LORATADINE
     Indication: HYPERSENSITIVITY
     Route: 048
     Dates: end: 20200609
  2. FAMOTIDINE. [Concomitant]
     Active Substance: FAMOTIDINE
     Indication: URTICARIA
     Route: 065
     Dates: start: 20200609
  3. XYZAL [Concomitant]
     Active Substance: LEVOCETIRIZINE DIHYDROCHLORIDE
     Indication: HYPERSENSITIVITY
     Route: 048
     Dates: start: 20200609
  4. JANUVIA [Concomitant]
     Active Substance: SITAGLIPTIN PHOSPHATE
     Indication: DIABETES MELLITUS
     Route: 048
  5. ALLEGRA [Concomitant]
     Active Substance: FEXOFENADINE HYDROCHLORIDE
     Route: 048
  6. ROSUVASTATIN. [Suspect]
     Active Substance: ROSUVASTATIN
     Indication: BLOOD CHOLESTEROL INCREASED
     Route: 048
  7. MONTELUKAST [Concomitant]
     Active Substance: MONTELUKAST SODIUM
     Indication: ASTHMA
     Route: 048
  8. FAMOTIDINE. [Concomitant]
     Active Substance: FAMOTIDINE
     Indication: PRURITUS
     Route: 065
     Dates: start: 20200609
  9. FASENRA [Suspect]
     Active Substance: BENRALIZUMAB
     Indication: ASTHMA
     Dosage: 30MG/ML EVERY EIGHT WEEKS
     Route: 058
     Dates: start: 20190621, end: 20200529
  10. ALBUTEROL NEBULIZER [Concomitant]
     Active Substance: ALBUTEROL
     Indication: ASTHMA
     Dosage: 2.5MG AS REQUIRED
     Route: 065
  11. COMBIVENT [Concomitant]
     Active Substance: ALBUTEROL SULFATE\IPRATROPIUM BROMIDE
     Indication: ASTHMA
     Dosage: 20.0UG/INHAL AS REQUIRED
     Route: 055
  12. PREDNISONE. [Concomitant]
     Active Substance: PREDNISONE
     Indication: PRURITUS
     Route: 048
     Dates: start: 20200609
  13. ADVAIR HFA [Concomitant]
     Active Substance: FLUTICASONE PROPIONATE\SALMETEROL XINAFOATE
     Indication: ASTHMA
     Route: 055
  14. PREDNISONE. [Concomitant]
     Active Substance: PREDNISONE
     Indication: URTICARIA
     Route: 048
     Dates: start: 20200609

REACTIONS (3)
  - Pruritus [Not Recovered/Not Resolved]
  - Dyspnoea [Not Recovered/Not Resolved]
  - Urticaria [Not Recovered/Not Resolved]

NARRATIVE: CASE EVENT DATE: 20200606
